FAERS Safety Report 7690402-2 (Version None)
Quarter: 2011Q3

REPORT INFORMATION
  Report Type: 
  Country: None (occurrence: None)
  Receive Date: 20110817
  Receipt Date: 20110817
  Transmission Date: 20111222
  Serious: No
  Sender: FDA-Public Use
  Company Number: None

PATIENT
  Sex: Female
  Weight: 72.5 kg

DRUGS (1)
  1. XELODA [Suspect]
     Dosage: 1000MG BID PO
     Route: 048
     Dates: start: 20110730, end: 20110805

REACTIONS (3)
  - FEELING HOT [None]
  - PAIN IN EXTREMITY [None]
  - STOMATITIS [None]
